FAERS Safety Report 24781072 (Version 1)
Quarter: 2024Q4

REPORT INFORMATION
  Report Type: Spontaneous
  Country: FR (occurrence: FR)
  Receive Date: 20241227
  Receipt Date: 20241227
  Transmission Date: 20250115
  Serious: Yes (Other)
  Sender: TEVA
  Company Number: None

PATIENT
  Age: 79 Year
  Sex: Male

DRUGS (2)
  1. CLOPIDOGREL [Suspect]
     Active Substance: CLOPIDOGREL BISULFATE
     Indication: Product used for unknown indication
     Dosage: CLOPIDOGREL (BESILATE)
     Route: 048
  2. ELIQUIS [Suspect]
     Active Substance: APIXABAN
     Indication: Anticoagulant therapy
     Route: 048

REACTIONS (1)
  - Cerebral haematoma [Recovering/Resolving]

NARRATIVE: CASE EVENT DATE: 20210219
